FAERS Safety Report 14329427 (Version 1)
Quarter: 2017Q4

REPORT INFORMATION
  Report Type: Spontaneous
  Country: US (occurrence: US)
  Receive Date: 20171227
  Receipt Date: 20171227
  Transmission Date: 20180321
  Serious: No
  Sender: FDA-Public Use
  Company Number: US-TEVA-2017-US-837049

PATIENT
  Sex: Female

DRUGS (1)
  1. CLONIDINE ACTAVIS [Suspect]
     Active Substance: CLONIDINE
     Indication: BLOOD PRESSURE MEASUREMENT
     Route: 065

REACTIONS (3)
  - Somnolence [Unknown]
  - Blood pressure increased [Unknown]
  - Quality of life decreased [Unknown]

NARRATIVE: CASE EVENT DATE: 20171202
